FAERS Safety Report 10053105 (Version 1)
Quarter: 2014Q2

REPORT INFORMATION
  Report Type: Report from Study
  Country: BR (occurrence: BR)
  Receive Date: 20140402
  Receipt Date: 20140402
  Transmission Date: 20141212
  Serious: Yes (Hospitalization, Other)
  Sender: FDA-Public Use
  Company Number: PHHY2014BR034894

PATIENT
  Sex: Female

DRUGS (7)
  1. DIOVAN [Suspect]
     Indication: HYPERTENSION
     Dosage: 1 DF, (320 MG) DAILY
     Route: 048
  2. TEGRETOL [Suspect]
     Indication: TRIGEMINAL NEURALGIA
     Dosage: 1 DF, (200 MG) DAILY
     Route: 048
  3. TEGRETOL [Suspect]
     Dosage: 2 DF, UNK
  4. DIOVAN HCT [Suspect]
     Dosage: UNK UKN, UNK
  5. PURAN T4 [Concomitant]
     Indication: THYROID DISORDER
     Dosage: UNK UKN, UNK
  6. RETEMIC [Concomitant]
     Indication: URINARY INCONTINENCE
     Dosage: UNK UKN, UNK
  7. ATENENOL [Concomitant]
     Indication: CARDIAC DISORDER
     Dosage: UNK UKN, UNK

REACTIONS (12)
  - Infection [Recovering/Resolving]
  - Limb discomfort [Recovering/Resolving]
  - Pyrexia [Recovering/Resolving]
  - Vomiting [Recovering/Resolving]
  - Swelling [Recovering/Resolving]
  - Trigeminal neuralgia [Recovering/Resolving]
  - Condition aggravated [Recovering/Resolving]
  - Angina pectoris [Recovering/Resolving]
  - Dyspnoea [Recovering/Resolving]
  - Blood pressure inadequately controlled [Recovering/Resolving]
  - Oral pain [Recovering/Resolving]
  - Speech disorder [Recovering/Resolving]
